FAERS Safety Report 4810930-4 (Version None)
Quarter: 2005Q4

REPORT INFORMATION
  Report Type: 
  Country: None (occurrence: None)
  Receive Date: 20051027
  Receipt Date: 20051014
  Transmission Date: 20060501
  Serious: Yes (Other)
  Sender: FDA-Public Use
  Company Number: CZ-NOVOPROD-247804

PATIENT
  Age: 75 Year
  Sex: Male
  Weight: 85 kg

DRUGS (11)
  1. NOVOSEVEN [Suspect]
     Indication: UPPER GASTROINTESTINAL HAEMORRHAGE
     Dosage: 300 UG/KG
     Route: 042
     Dates: start: 20051012, end: 20051013
  2. REMESTYP [Concomitant]
     Dosage: 12 MG, QD
     Route: 042
     Dates: start: 20051012, end: 20051013
  3. HELICID [Concomitant]
     Dosage: 80 MG, QD
     Route: 042
     Dates: start: 20051012
  4. CIPRINOL [Concomitant]
     Dosage: 400 MG, QD
     Route: 042
     Dates: start: 20051012
  5. CIPROFLOXACIN [Concomitant]
     Dosage: 400 MG, QD
     Route: 042
     Dates: start: 20051012
  6. AMBROXOL K [Concomitant]
     Dosage: 45 MG, QD
     Route: 042
     Dates: start: 20051012
  7. CARVEDILOL [Concomitant]
     Dosage: 12.5 MG, QD
     Route: 048
     Dates: start: 20051013, end: 20051015
  8. LACTULOSE [Concomitant]
     Dosage: 30 ML, QD
     Route: 048
     Dates: start: 20051012, end: 20051015
  9. VEROSPIRON [Concomitant]
     Dosage: 150 MG, QD
     Route: 048
     Dates: start: 20051012, end: 20051015
  10. QUAMATEL [Concomitant]
     Dosage: 80 MG, QD
     Route: 042
     Dates: start: 20051018
  11. NORADRENALINE [Concomitant]
     Dosage: 1 UG/KG, PER MINUTE
     Route: 042
     Dates: start: 20051015

REACTIONS (6)
  - ACUTE MYOCARDIAL INFARCTION [None]
  - CARDIAC ARREST [None]
  - CARDIOVERSION [None]
  - COMA [None]
  - MULTI-ORGAN FAILURE [None]
  - VENTRICULAR FIBRILLATION [None]
